FAERS Safety Report 22523813 (Version 1)
Quarter: 2023Q2

REPORT INFORMATION
  Report Type: Spontaneous
  Country: US (occurrence: None)
  Receive Date: 20230606
  Receipt Date: 20230606
  Transmission Date: 20230722
  Serious: No
  Sender: FDA-Public Use
  Company Number: US-Hikma Pharmaceuticals USA Inc.-US-H14001-23-00771

PATIENT
  Age: 75 Year
  Sex: Female
  Weight: 74.38 kg

DRUGS (9)
  1. FLUTICASONE [Suspect]
     Active Substance: FLUTICASONE
     Indication: Nasal congestion
     Dosage: 100 MCG IN EACH NOSTRIL
     Route: 045
     Dates: end: 20230226
  2. FLUTICASONE [Suspect]
     Active Substance: FLUTICASONE
     Indication: Influenza
  3. FLUTICASONE [Suspect]
     Active Substance: FLUTICASONE
     Indication: Sinusitis
  4. AMLODIPINE [Concomitant]
     Active Substance: AMLODIPINE BESYLATE
     Indication: Product used for unknown indication
     Dosage: UNKNOWN
     Route: 065
     Dates: start: 202106
  5. PLAVIX [Concomitant]
     Active Substance: CLOPIDOGREL BISULFATE
     Indication: Product used for unknown indication
     Dosage: UNKNOWN
     Route: 065
     Dates: start: 202106
  6. CRESTOR [Concomitant]
     Active Substance: ROSUVASTATIN CALCIUM
     Indication: Product used for unknown indication
     Dosage: UNKNOWN
     Route: 065
     Dates: start: 202106
  7. FAMOTIDINE [Concomitant]
     Active Substance: FAMOTIDINE
     Indication: Product used for unknown indication
     Dosage: UNKNOWN
     Route: 065
  8. ZITHROMAX [Concomitant]
     Active Substance: AZITHROMYCIN DIHYDRATE
     Indication: Product used for unknown indication
     Dosage: UNKNOWN
     Route: 065
     Dates: start: 20230224, end: 20230228
  9. ALBUTEROL SULFATE [Concomitant]
     Active Substance: ALBUTEROL SULFATE
     Indication: Product used for unknown indication
     Dosage: UNKNOWN
     Route: 065
     Dates: start: 20230223

REACTIONS (5)
  - Rhinorrhoea [Recovered/Resolved]
  - Haemoptysis [Recovered/Resolved]
  - Secretion discharge [Recovered/Resolved]
  - Epistaxis [Recovered/Resolved]
  - Off label use [Unknown]

NARRATIVE: CASE EVENT DATE: 20230226
